FAERS Safety Report 4818661-1 (Version None)
Quarter: 2005Q4

REPORT INFORMATION
  Report Type: 
  Country: None (occurrence: None)
  Receive Date: 20051102
  Receipt Date: 20050414
  Transmission Date: 20060501
  Serious: Yes (Other)
  Sender: FDA-Public Use
  Company Number: US-MERCK-0504USA02878

PATIENT
  Sex: Female
  Weight: 76 kg

DRUGS (10)
  1. VIOXX [Suspect]
     Indication: OSTEOARTHRITIS
     Route: 048
     Dates: end: 20040901
  2. VIOXX [Suspect]
     Indication: RHEUMATOID ARTHRITIS
     Route: 048
     Dates: end: 20040901
  3. HYDROCODONE BITARTRATE [Concomitant]
     Indication: PAIN
     Route: 065
  4. LOTENSIN [Concomitant]
     Indication: HYPERTENSION
     Route: 065
  5. CARDIZEM [Concomitant]
     Indication: CHEST PAIN
     Route: 065
  6. CARDIZEM [Concomitant]
     Indication: CARDIAC DISORDER
     Route: 065
  7. TEQUIN [Concomitant]
     Route: 065
     Dates: start: 20030101, end: 20050101
  8. PROMETHAZINE [Concomitant]
     Route: 065
  9. LANOXIN [Concomitant]
     Indication: CARDIAC DISORDER
     Route: 065
  10. KLOR-CON [Concomitant]
     Indication: MINERAL SUPPLEMENTATION
     Route: 065

REACTIONS (5)
  - CEREBROVASCULAR ACCIDENT [None]
  - CHRONIC FATIGUE SYNDROME [None]
  - HYPERTENSION [None]
  - OESOPHAGEAL DISORDER [None]
  - THROMBOSIS [None]
